FAERS Safety Report 7933463-5 (Version None)
Quarter: 2011Q4

REPORT INFORMATION
  Report Type: 
  Country: None (occurrence: None)
  Receive Date: 20111118
  Receipt Date: 20111104
  Transmission Date: 20120403
  Serious: Yes (Hospitalization)
  Sender: FDA-Public Use
  Company Number: 2011SP051995

PATIENT
  Age: 45 Year
  Sex: Male
  Weight: 80.8 kg

DRUGS (5)
  1. TEMOZOLOMIDE [Suspect]
     Indication: GLIOBLASTOMA
     Dosage: 140 MG;QD;PO
     Route: 048
     Dates: start: 20100914, end: 20101007
  2. BLINDED BEVACIZUMAB (BEVACIZUMAB) [Suspect]
     Indication: PRODUCT USED FOR UNKNOWN INDICATION
     Dosage: ;BIW;
     Dates: start: 20100914, end: 20101012
  3. ESOMEPRAZOLE [Concomitant]
  4. PANTOPRAZOLE [Concomitant]
  5. FORTECORTIN [Concomitant]

REACTIONS (3)
  - HYPERBILIRUBINAEMIA [None]
  - ALANINE AMINOTRANSFERASE INCREASED [None]
  - ASPARTATE AMINOTRANSFERASE INCREASED [None]
